FAERS Safety Report 4665466-0 (Version None)
Quarter: 2005Q2

REPORT INFORMATION
  Report Type: 
  Country: None (occurrence: None)
  Receive Date: 20050519
  Receipt Date: 20040402
  Transmission Date: 20051028
  Serious: No
  Sender: FDA-Public Use
  Company Number: US-BRISTOL-MYERS SQUIBB COMPANY-12550638

PATIENT
  Age: 55 Year
  Sex: Female
  Weight: 68 kg

DRUGS (5)
  1. CYTOXAN [Suspect]
     Indication: OVARIAN CANCER
     Route: 042
     Dates: start: 20040324, end: 20040324
  2. DECADRON [Concomitant]
     Route: 048
  3. ANZEMET [Concomitant]
     Route: 048
  4. ANZEMET [Concomitant]
     Indication: PREMEDICATION
     Route: 042
  5. DECADRON [Concomitant]
     Indication: PREMEDICATION
     Route: 042

REACTIONS (2)
  - CRACKLES LUNG [None]
  - OEDEMA PERIPHERAL [None]
